FAERS Safety Report 9158795 (Version 1)
Quarter: 2013Q1

REPORT INFORMATION
  Report Type: Spontaneous
  Country: SI (occurrence: SI)
  Receive Date: 20130114
  Receipt Date: 20130114
  Transmission Date: 20140127
  Serious: Yes (Other)
  Sender: FDA-Public Use
  Company Number: SI-BRACCO-000020

PATIENT
  Age: 47 Year
  Sex: Female

DRUGS (2)
  1. IOPAMIDOL [Suspect]
     Indication: COMPUTERISED TOMOGRAM
     Dosage: 5, DOSE UNIT WAS NOT SPECIFED
     Dates: start: 20121130, end: 20121130
  2. ULTRAVIST [Suspect]
     Indication: COMPUTERISED TOMOGRAM
     Dosage: 90, DOSE UNIT WAS NOT SPECIFIED
     Dates: start: 20121130, end: 20121130

REACTIONS (2)
  - Urticaria [Recovered/Resolved]
  - Hypertension [Recovered/Resolved]
